FAERS Safety Report 11709141 (Version 1)
Quarter: 2015Q4

REPORT INFORMATION
  Report Type: Spontaneous
  Country: US (occurrence: US)
  Receive Date: 20151104
  Receipt Date: 20151104
  Transmission Date: 20160304
  Serious: No
  Sender: FDA-Public Use
  Company Number: US-ELI_LILLY_AND_COMPANY-US201102001866

PATIENT
  Age: 68 Year
  Sex: Female

DRUGS (3)
  1. FORTEO [Suspect]
     Active Substance: TERIPARATIDE
     Dosage: 20 UG, QD
  2. FORTEO [Suspect]
     Active Substance: TERIPARATIDE
     Dosage: 20 UG, QD
     Route: 065
     Dates: end: 201108
  3. FORTEO [Suspect]
     Active Substance: TERIPARATIDE
     Indication: OSTEOPOROSIS
     Dosage: 20 UG, DAILY (1/D)
     Dates: start: 20110113

REACTIONS (16)
  - Extrasystoles [Recovered/Resolved]
  - Dyskinesia [Unknown]
  - Laryngitis [Unknown]
  - Hypertension [Unknown]
  - Intentional product misuse [Unknown]
  - Gait disturbance [Unknown]
  - Heart rate decreased [Unknown]
  - Cardiac disorder [Unknown]
  - Visual impairment [Not Recovered/Not Resolved]
  - Dizziness [Not Recovered/Not Resolved]
  - Heart rate increased [Recovered/Resolved]
  - Cough [Unknown]
  - Presyncope [Unknown]
  - Pain in extremity [Unknown]
  - Injection site bruising [Unknown]
  - Muscle spasms [Unknown]

NARRATIVE: CASE EVENT DATE: 201102
